FAERS Safety Report 22642260 (Version 4)
Quarter: 2025Q1

REPORT INFORMATION
  Report Type: Report from Study
  Country: US (occurrence: US)
  Receive Date: 20230626
  Receipt Date: 20250304
  Transmission Date: 20250409
  Serious: Yes (Death, Hospitalization, Other)
  Sender: GILEAD
  Company Number: US-GILEAD-2023-0633660

PATIENT
  Age: 83 Year
  Sex: Male

DRUGS (2)
  1. AZTREONAM LYSINE [Suspect]
     Active Substance: AZTREONAM LYSINE
     Indication: Dyspnoea
     Dosage: 75 MG, TID
     Route: 055
     Dates: start: 20230623
  2. AZTREONAM LYSINE [Suspect]
     Active Substance: AZTREONAM LYSINE
     Indication: Pseudomonas infection
     Route: 065
     Dates: start: 202406

REACTIONS (4)
  - Death [Fatal]
  - Haematochezia [Unknown]
  - Cardiac pacemaker replacement [Unknown]
  - Off label use [Not Recovered/Not Resolved]

NARRATIVE: CASE EVENT DATE: 20250221
